FAERS Safety Report 13035879 (Version 3)
Quarter: 2017Q1

REPORT INFORMATION
  Report Type: Spontaneous
  Country: US (occurrence: US)
  Receive Date: 20161216
  Receipt Date: 20170207
  Transmission Date: 20170428
  Serious: No
  Sender: FDA-Public Use
  Company Number: US-PFIZER INC-2016582303

PATIENT
  Age: 55 Year
  Sex: Female
  Weight: 69 kg

DRUGS (1)
  1. FLECTOR [Suspect]
     Active Substance: DICLOFENAC EPOLAMINE
     Indication: BACK PAIN
     Dosage: 1 DF, SINGLE
     Route: 062
     Dates: start: 20161213, end: 20161213

REACTIONS (4)
  - Vomiting [Unknown]
  - Drug ineffective [Unknown]
  - Nausea [Recovered/Resolved]
  - Malaise [Unknown]

NARRATIVE: CASE EVENT DATE: 20161213
